FAERS Safety Report 23709096 (Version 1)
Quarter: 2024Q2

REPORT INFORMATION
  Report Type: Spontaneous
  Country: CN (occurrence: CN)
  Receive Date: 20240404
  Receipt Date: 20240404
  Transmission Date: 20240716
  Serious: Yes (Life-Threatening)
  Sender: FDA-Public Use
  Company Number: CN-FreseniusKabi-FK202405405

PATIENT
  Age: 37 Year
  Sex: Male
  Weight: 70 kg

DRUGS (7)
  1. PROPOFOL [Suspect]
     Active Substance: PROPOFOL
     Indication: General anaesthesia
     Dosage: ROUTE OF ADMIN: MICROPUMP BOLUS?FORM OF ADMIN: INJECTION
     Dates: start: 20240322, end: 20240322
  2. ETOMIDATE [Suspect]
     Active Substance: ETOMIDATE
     Indication: General anaesthesia
     Dosage: INJECTION
     Route: 042
     Dates: start: 20240322, end: 20240322
  3. MIDAZOLAM HYDROCHLORIDE [Suspect]
     Active Substance: MIDAZOLAM HYDROCHLORIDE
     Indication: General anaesthesia
     Dosage: INJECTION
     Route: 042
     Dates: start: 20240322, end: 20240322
  4. SUFENTANIL CITRATE [Suspect]
     Active Substance: SUFENTANIL CITRATE
     Indication: General anaesthesia
     Dosage: INJECTION
     Route: 042
     Dates: start: 20240322, end: 20240322
  5. CEFAZOLIN SODIUM [Suspect]
     Active Substance: CEFAZOLIN SODIUM
     Indication: Prophylaxis
     Dosage: POWDER FOR INJECTION
     Route: 041
     Dates: start: 20240322, end: 20240322
  6. CISATRACURIUM BESYLATE [Suspect]
     Active Substance: CISATRACURIUM BESYLATE
     Indication: General anaesthesia
     Dosage: POWDER FOR INJECTION
     Route: 042
     Dates: start: 20240322, end: 20240322
  7. SODIUM CHLORIDE [Concomitant]
     Active Substance: SODIUM CHLORIDE
     Indication: Vehicle solution use
     Dosage: INJECTION
     Route: 041
     Dates: start: 20240322, end: 20240322

REACTIONS (1)
  - Anaphylactic shock [Recovered/Resolved]

NARRATIVE: CASE EVENT DATE: 20240322
